FAERS Safety Report 8811182 (Version 1)
Quarter: 2012Q4

REPORT INFORMATION
  Report Type: Spontaneous
  Country: US (occurrence: None)
  Receive Date: 20120924
  Receipt Date: 20120924
  Transmission Date: 20130627
  Serious: Yes (Hospitalization)
  Sender: FDA-Public Use
  Company Number: None

PATIENT
  Age: 3 Day
  Sex: Male
  Weight: 9.15 kg

DRUGS (1)
  1. EMLA CREME [Suspect]
     Indication: CIRCUMCISION
     Dosage: 1-2 grams, one dose, top
     Route: 061
     Dates: start: 20120514, end: 20120514

REACTIONS (2)
  - Penile erythema [None]
  - Penile swelling [None]
